FAERS Safety Report 14226628 (Version 2)
Quarter: 2018Q1

REPORT INFORMATION
  Report Type: Spontaneous
  Country: IT (occurrence: IT)
  Receive Date: 20171127
  Receipt Date: 20180126
  Transmission Date: 20180508
  Serious: Yes (Hospitalization, Other)
  Sender: FDA-Public Use
  Company Number: IT-OTSUKA-2017_017728

PATIENT
  Age: 26 Year
  Sex: Male

DRUGS (2)
  1. EN [Concomitant]
     Active Substance: DELORAZEPAM
     Indication: PRODUCT USED FOR UNKNOWN INDICATION
     Dosage: 1 MG, UNK (1 DF=50 DROPS X 3)
     Route: 065
     Dates: start: 20170723
  2. ABILIFY [Suspect]
     Active Substance: ARIPIPRAZOLE
     Indication: PRODUCT USED FOR UNKNOWN INDICATION
     Dosage: 10 MG, BID (LAST DOSE ON 10-AUG-2017)
     Route: 048
     Dates: start: 20170723, end: 20170810

REACTIONS (5)
  - Delirium [Unknown]
  - Dysphoria [Unknown]
  - Hospitalisation [Unknown]
  - Off label use [Unknown]
  - Intentional product misuse [Unknown]

NARRATIVE: CASE EVENT DATE: 20170810
